FAERS Safety Report 6249653-6 (Version None)
Quarter: 2009Q2

REPORT INFORMATION
  Report Type: 
  Country: None (occurrence: None)
  Receive Date: 20090629
  Receipt Date: 20090629
  Transmission Date: 20091009
  Serious: Yes (Other)
  Sender: FDA-Public Use
  Company Number: US-PFIZER INC-2009199427

PATIENT
  Sex: Female

DRUGS (3)
  1. CELEBREX [Suspect]
     Indication: ARTHRITIS
     Dosage: UNK
  2. IBUPROFEN [Suspect]
  3. TYLENOL (CAPLET) [Suspect]

REACTIONS (4)
  - GASTROINTESTINAL DISORDER [None]
  - KNEE ARTHROPLASTY [None]
  - MEDICATION ERROR [None]
  - SURGERY [None]
